FAERS Safety Report 23361808 (Version 1)
Quarter: 2024Q1

REPORT INFORMATION
  Report Type: Spontaneous
  Country: US (occurrence: US)
  Receive Date: 20240103
  Receipt Date: 20240103
  Transmission Date: 20240409
  Serious: No
  Sender: FDA-Public Use
  Company Number: US-PFIZER INC-202300455110

PATIENT
  Age: 67 Year
  Sex: Female

DRUGS (2)
  1. PAXLOVID [Suspect]
     Active Substance: NIRMATRELVIR\RITONAVIR
     Indication: COVID-19 treatment
     Dosage: UNK
     Dates: start: 20231217, end: 20231220
  2. NATURE MADE B12 VITAMIN [Concomitant]
     Dosage: UNK
     Dates: start: 20220101

REACTIONS (9)
  - Nausea [Unknown]
  - Decreased appetite [Unknown]
  - Epigastric discomfort [Unknown]
  - Migraine [Unknown]
  - Vomiting [Unknown]
  - Chills [Unknown]
  - Nasal congestion [Unknown]
  - Sneezing [Unknown]
  - Rhinorrhoea [Unknown]

NARRATIVE: CASE EVENT DATE: 20231218
